FAERS Safety Report 15190438 (Version 5)
Quarter: 2019Q1

REPORT INFORMATION
  Report Type: Spontaneous
  Country: FR (occurrence: FR)
  Receive Date: 20180724
  Receipt Date: 20190325
  Transmission Date: 20190417
  Serious: Yes (Death, Other)
  Sender: FDA-Public Use
  Company Number: FR-PFIZER INC-2018292758

PATIENT
  Age: 39 Year
  Sex: Female
  Weight: 81 kg

DRUGS (4)
  1. SERESTA [Concomitant]
     Active Substance: OXAZEPAM
     Dosage: 10 MG, UNK
  2. XARELTO [Suspect]
     Active Substance: RIVAROXABAN
     Indication: PULMONARY EMBOLISM
     Dosage: 30 MG, ONCE DAILY
     Route: 048
     Dates: start: 20180604
  3. AFINITOR [Suspect]
     Active Substance: EVEROLIMUS
     Indication: BREAST CANCER METASTATIC
     Dosage: 10 MG, ONCE A DAY
     Route: 048
     Dates: start: 20171227, end: 20180606
  4. EXEMESTANE. [Suspect]
     Active Substance: EXEMESTANE
     Indication: BREAST CANCER METASTATIC
     Dosage: 25 MG, ONCE A DAY
     Route: 048
     Dates: start: 20171227, end: 20180606

REACTIONS (8)
  - Thrombocytopenia [Fatal]
  - Shock haemorrhagic [Fatal]
  - Hypovolaemic shock [Fatal]
  - Hepatitis [Fatal]
  - Pulmonary embolism [Fatal]
  - Respiratory distress [Fatal]
  - Liver function test abnormal [Unknown]
  - Lung infiltration [Unknown]

NARRATIVE: CASE EVENT DATE: 20180604
